FAERS Safety Report 6891622-7 (Version None)
Quarter: 2010Q3

REPORT INFORMATION
  Report Type: 
  Country: None (occurrence: None)
  Receive Date: 20100731
  Receipt Date: 20070810
  Transmission Date: 20110219
  Serious: No
  Sender: FDA-Public Use
  Company Number: US-PFIZER INC-2007068043

PATIENT
  Sex: Male
  Weight: 108.86 kg

DRUGS (2)
  1. NORVASC [Suspect]
     Indication: HYPERTENSION
     Dates: start: 20070101
  2. AMIODARONE HCL [Suspect]
     Indication: CARDIAC ABLATION
     Dates: start: 20070101

REACTIONS (1)
  - OEDEMA PERIPHERAL [None]
